FAERS Safety Report 18844447 (Version 1)
Quarter: 2021Q1

REPORT INFORMATION
  Report Type: Report from Study
  Country: None (occurrence: US)
  Receive Date: 20210203
  Receipt Date: 20210203
  Transmission Date: 20210419
  Serious: Yes (Hospitalization, Other)
  Sender: FDA-Public Use
  Company Number: US-ABBVIE-21K-163-3750638-00

PATIENT
  Age: 39 Year
  Sex: Male
  Weight: 80.81 kg

DRUGS (6)
  1. IRON [Concomitant]
     Active Substance: IRON
     Indication: DUODENECTOMY
  2. TRESIBA [Concomitant]
     Active Substance: INSULIN DEGLUDEC
     Indication: DIABETES MELLITUS
  3. CREON [Suspect]
     Active Substance: PANCRELIPASE AMYLASE\PANCRELIPASE LIPASE\PANCRELIPASE PROTEASE
     Indication: PANCREATECTOMY
     Dosage: SIX CAPSULES PER MEAL AND THREE CAPSULES PER SNACK
     Route: 048
     Dates: start: 20170207, end: 20210121
  4. FIASP [Concomitant]
     Active Substance: INSULIN ASPART
     Indication: DIABETES MELLITUS
  5. CREON [Suspect]
     Active Substance: PANCRELIPASE AMYLASE\PANCRELIPASE LIPASE\PANCRELIPASE PROTEASE
     Dosage: THREE TO FOUR CAPSULES PER MEAL
     Route: 048
     Dates: start: 20210122
  6. FAMOTIDINE. [Concomitant]
     Active Substance: FAMOTIDINE
     Indication: PRODUCT USED FOR UNKNOWN INDICATION

REACTIONS (5)
  - Blood glucose increased [Recovered/Resolved]
  - Viral infection [Recovered/Resolved]
  - Intentional product misuse [Not Recovered/Not Resolved]
  - Type 3 diabetes mellitus [Not Recovered/Not Resolved]
  - Viral infection [Recovered/Resolved]

NARRATIVE: CASE EVENT DATE: 2017
